FAERS Safety Report 8624996-7 (Version None)
Quarter: 2012Q3

REPORT INFORMATION
  Report Type: 
  Country: None (occurrence: None)
  Receive Date: 20120827
  Receipt Date: 20120822
  Transmission Date: 20120928
  Serious: Yes (Hospitalization)
  Sender: FDA-Public Use
  Company Number: PHHY2012KR072829

PATIENT
  Age: 54 Year
  Sex: Male

DRUGS (4)
  1. CILOSTAZOL [Suspect]
     Indication: ANTIPLATELET THERAPY
  2. ASPIRIN [Concomitant]
     Indication: THROMBOSIS IN DEVICE
  3. CARBAMAZEPINE [Suspect]
     Indication: NEUROPATHY PERIPHERAL
  4. CLOPIDEGREL [Concomitant]
     Indication: THROMBOSIS IN DEVICE

REACTIONS (13)
  - DRUG RASH WITH EOSINOPHILIA AND SYSTEMIC SYMPTOMS [None]
  - LYMPHOCYTIC INFILTRATION [None]
  - RASH MACULO-PAPULAR [None]
  - DERMATITIS EXFOLIATIVE [None]
  - SKIN LESION [None]
  - RASH [None]
  - PYREXIA [None]
  - EOSINOPHILIA [None]
  - GENERAL PHYSICAL CONDITION ABNORMAL [None]
  - PERIVASCULAR DERMATITIS [None]
  - LEUKOCYTOSIS [None]
  - MYALGIA [None]
  - CYTOLYTIC HEPATITIS [None]
